FAERS Safety Report 4342550-2 (Version None)
Quarter: 2004Q2

REPORT INFORMATION
  Report Type: 
  Country: None (occurrence: None)
  Receive Date: 20040419
  Receipt Date: 20040419
  Transmission Date: 20050107
  Serious: Yes (Life-Threatening, Hospitalization, Disabling, Other)
  Sender: FDA-Public Use
  Company Number: None

PATIENT
  Age: 47 Year
  Sex: Female
  Weight: 69.4003 kg

DRUGS (10)
  1. RISPERDAL [Suspect]
     Indication: SCHIZOPHRENIA, PARANOID TYPE
     Dosage: 25 MG EVERY 2 WEEKS INJECTED
     Dates: start: 20040115
  2. RISPERDAL [Suspect]
     Indication: SCHIZOPHRENIA, PARANOID TYPE
     Dosage: 25 MG EVERY 2 WEEKS INJECTED
     Dates: start: 20040129
  3. RISPERDAL [Suspect]
     Indication: SCHIZOPHRENIA, PARANOID TYPE
     Dosage: 25 MG EVERY 2 WEEKS INJECTED
     Dates: start: 20040212
  4. RISPERDAL [Suspect]
     Indication: SCHIZOPHRENIA, PARANOID TYPE
     Dosage: 25 MG EVERY 2 WEEKS INJECTED
     Dates: start: 20040226
  5. RISPERDAL [Suspect]
     Indication: SCHIZOPHRENIA, PARANOID TYPE
     Dosage: 25 MG EVERY 2 WEEKS INJECTED
     Dates: start: 20040311
  6. RISPERDAL [Suspect]
     Indication: SCHIZOPHRENIA, PARANOID TYPE
     Dosage: 25 MG EVERY 2 WEEKS INJECTED
     Dates: start: 20040329
  7. RISPERDAL [Suspect]
     Indication: SCHIZOPHRENIA, PARANOID TYPE
     Dosage: 2 MG THEN 3 MG DAILY
     Dates: start: 20030101
  8. RISPERDAL [Suspect]
     Indication: SCHIZOPHRENIA, PARANOID TYPE
     Dosage: 2 MG THEN 3 MG DAILY
     Dates: start: 20030209
  9. RISPERDAL [Suspect]
     Indication: SCHIZOPHRENIA, PARANOID TYPE
     Dosage: 2 MG THEN 3 MG DAILY
     Dates: start: 20030905
  10. RISPERDAL [Suspect]
     Indication: SCHIZOPHRENIA, PARANOID TYPE
     Dosage: 2 MG THEN 3 MG DAILY
     Dates: start: 20040801

REACTIONS (29)
  - ABDOMINAL DISTENSION [None]
  - ASTHMA [None]
  - BURN OESOPHAGEAL [None]
  - CHEST PAIN [None]
  - CONVULSION [None]
  - CRYING [None]
  - DERMATITIS EXFOLIATIVE [None]
  - EPILEPSY [None]
  - FACIAL PALSY [None]
  - FALL [None]
  - FATIGUE [None]
  - FLATULENCE [None]
  - INFECTION [None]
  - LOSS OF CONSCIOUSNESS [None]
  - MUSCLE RIGIDITY [None]
  - MYALGIA [None]
  - NAUSEA [None]
  - NIGHTMARE [None]
  - OEDEMA PERIPHERAL [None]
  - RASH [None]
  - SKIN DISORDER [None]
  - SKIN INFECTION [None]
  - SLEEP ATTACKS [None]
  - SLEEP DISORDER [None]
  - SPEECH DISORDER [None]
  - SYNCOPE [None]
  - THROAT IRRITATION [None]
  - VOMITING [None]
  - WEIGHT INCREASED [None]
